FAERS Safety Report 25585442 (Version 2)
Quarter: 2025Q3

REPORT INFORMATION
  Report Type: Report from Study
  Country: US (occurrence: US)
  Receive Date: 20250721
  Receipt Date: 20250729
  Transmission Date: 20251020
  Serious: No
  Sender: ABBVIE
  Company Number: US-ABBVIE-6375409

PATIENT
  Age: 75 Year
  Sex: Female
  Weight: 63.049 kg

DRUGS (1)
  1. CREON [Suspect]
     Active Substance: PANCRELIPASE AMYLASE\PANCRELIPASE LIPASE\PANCRELIPASE PROTEASE
     Indication: Pancreatic failure
     Route: 048
     Dates: start: 2023

REACTIONS (4)
  - Fall [Not Recovered/Not Resolved]
  - Balance disorder [Unknown]
  - Hypophagia [Unknown]
  - Product residue present [Unknown]

NARRATIVE: CASE EVENT DATE: 20250710
